FAERS Safety Report 6412629-X (Version None)
Quarter: 2009Q4

REPORT INFORMATION
  Report Type: 
  Country: None (occurrence: None)
  Receive Date: 20091023
  Receipt Date: 20091012
  Transmission Date: 20100525
  Serious: Yes (Hospitalization)
  Sender: FDA-Public Use
  Company Number: PHHY2009MX44127

PATIENT
  Age: 65 Year
  Sex: Female

DRUGS (4)
  1. ACLASTA [Suspect]
     Indication: OSTEOPOROSIS
     Dosage: 5 MG/100 ML PER YEAR
  2. METFORMIN HCL [Concomitant]
  3. INSULIN [Concomitant]
  4. KETOROLAC TROMETHAMINE [Concomitant]

REACTIONS (3)
  - ACCIDENT [None]
  - SKELETAL INJURY [None]
  - UTERINE OPERATION [None]
